FAERS Safety Report 6988464-0 (Version None)
Quarter: 2010Q3

REPORT INFORMATION
  Report Type: 
  Country: None (occurrence: None)
  Receive Date: 20100916
  Receipt Date: 20100915
  Transmission Date: 20110219
  Serious: Yes (Other)
  Sender: FDA-Public Use
  Company Number: US-ABBOTT-10P-163-0669118-00

PATIENT
  Sex: Female
  Weight: 79.45 kg

DRUGS (11)
  1. HUMIRA [Suspect]
     Indication: ANKYLOSING SPONDYLITIS
     Dates: start: 20060801
  2. ENDOMYCIN [Concomitant]
     Indication: ANKYLOSING SPONDYLITIS
  3. NEXIUM [Concomitant]
     Indication: PROPHYLAXIS
  4. NEXIUM [Concomitant]
     Indication: GASTRIC DISORDER
  5. LISINOPRIL [Concomitant]
     Indication: HYPERTENSION
  6. LOVASTATIN [Concomitant]
     Indication: BLOOD CHOLESTEROL INCREASED
  7. TRAZODONE HCL [Concomitant]
     Indication: FIBROMYALGIA
  8. TRAZODONE HCL [Concomitant]
     Indication: RESTLESS LEGS SYNDROME
  9. MULTI-VITAMIN [Concomitant]
     Indication: VITAMIN SUPPLEMENTATION
  10. CALCIUM [Concomitant]
     Indication: PRODUCT USED FOR UNKNOWN INDICATION
  11. GLUCOSAMINE [Concomitant]
     Indication: PRODUCT USED FOR UNKNOWN INDICATION

REACTIONS (7)
  - ABDOMINAL PAIN UPPER [None]
  - BACK PAIN [None]
  - CHOLELITHIASIS [None]
  - COUGH [None]
  - MALAISE [None]
  - PANCREATITIS [None]
  - SINUS CONGESTION [None]
